FAERS Safety Report 9411861 (Version 1)
Quarter: 2013Q3

REPORT INFORMATION
  Report Type: Report from Study
  Country: CA (occurrence: CA)
  Receive Date: 20130722
  Receipt Date: 20130722
  Transmission Date: 20140515
  Serious: Yes (Hospitalization)
  Sender: FDA-Public Use
  Company Number: PHHY2013CA075729

PATIENT
  Sex: Female

DRUGS (4)
  1. ACLASTA [Suspect]
     Indication: OSTEOPOROSIS
     Dosage: UNK
     Route: 042
     Dates: start: 20090610
  2. ACLASTA [Suspect]
     Dosage: UNK
     Route: 042
     Dates: start: 20100630
  3. ACLASTA [Suspect]
     Dosage: UNK
     Route: 042
     Dates: start: 20110628
  4. ACLASTA [Suspect]
     Dosage: UNK
     Route: 042
     Dates: start: 20120710

REACTIONS (6)
  - Fall [Unknown]
  - Rib fracture [Unknown]
  - Pulmonary oedema [Unknown]
  - Coronary artery occlusion [Unknown]
  - Renal disorder [Unknown]
  - Dyspnoea [Unknown]
